FAERS Safety Report 8352140-2 (Version None)
Quarter: 2012Q2

REPORT INFORMATION
  Report Type: 
  Country: None (occurrence: None)
  Receive Date: 20120511
  Receipt Date: 20120502
  Transmission Date: 20120825
  Serious: Yes (Other)
  Sender: FDA-Public Use
  Company Number: CA-JNJFOC-20120503282

PATIENT
  Sex: Male

DRUGS (1)
  1. REMICADE [Suspect]
     Indication: ANKYLOSING SPONDYLITIS
     Route: 042
     Dates: start: 20090501, end: 20110801

REACTIONS (4)
  - ADVERSE EVENT [None]
  - HEART RATE INCREASED [None]
  - PRURITUS GENERALISED [None]
  - DYSPNOEA [None]
